FAERS Safety Report 9684278 (Version 2)
Quarter: 2014Q1

REPORT INFORMATION
  Report Type: Report from Study
  Country: FI (occurrence: FI)
  Receive Date: 20131112
  Receipt Date: 20140305
  Transmission Date: 20141002
  Serious: Yes (Other)
  Sender: FDA-Public Use
  Company Number: FI-PFIZER INC-2013315497

PATIENT
  Age: 61 Year
  Sex: Male

DRUGS (3)
  1. VANCOMYCIN [Suspect]
     Indication: DEVICE RELATED INFECTION
     Dosage: 1 G, 2X/DAY
  2. RIFAMPICIN [Suspect]
     Indication: DEVICE RELATED INFECTION
     Dosage: 600 MG, DAILY
  3. LEVOFLOXACIN [Concomitant]
     Dosage: 500 MG, 2X/DAY

REACTIONS (1)
  - Drug reaction with eosinophilia and systemic symptoms [Recovering/Resolving]
